FAERS Safety Report 5607627-X (Version None)
Quarter: 2008Q1

REPORT INFORMATION
  Report Type: 
  Country: None (occurrence: None)
  Receive Date: 20080130
  Receipt Date: 20080125
  Transmission Date: 20080703
  Serious: Yes (Life-Threatening, Hospitalization, Other)
  Sender: FDA-Public Use
  Company Number: PHEH2008US01204

PATIENT
  Age: 36 Year
  Sex: Female
  Weight: 75.283 kg

DRUGS (6)
  1. METOCLOPRAMIDE [Concomitant]
  2. HYDROCODONE W/APAP [Concomitant]
  3. ZELNORM [Suspect]
     Dosage: 6 MG, UNK
     Route: 048
     Dates: start: 20040605, end: 20040930
  4. CONTRAST MEDIA [Suspect]
     Dates: start: 20041004, end: 20041004
  5. DILAUDID [Suspect]
  6. ANALGESICS [Concomitant]

REACTIONS (24)
  - ACUTE MYOCARDIAL INFARCTION [None]
  - ANAPHYLACTIC REACTION [None]
  - BACK PAIN [None]
  - BLOOD CREATINE PHOSPHOKINASE MB INCREASED [None]
  - BLOOD PRESSURE INCREASED [None]
  - BREAST DISCOMFORT [None]
  - CHEST DISCOMFORT [None]
  - CHEST PAIN [None]
  - CONTRAST MEDIA REACTION [None]
  - DYSPNOEA [None]
  - ELECTROCARDIOGRAM ABNORMAL [None]
  - FATIGUE [None]
  - HYPOAESTHESIA ORAL [None]
  - HYPOTENSION [None]
  - HYPOXIA [None]
  - LAPAROSCOPY [None]
  - MYOCARDIAL ISCHAEMIA [None]
  - NON-CARDIAC CHEST PAIN [None]
  - PALPITATIONS [None]
  - SEDATION [None]
  - SOMNOLENCE [None]
  - TACHYCARDIA [None]
  - TROPONIN INCREASED [None]
  - VENTRICULAR EXTRASYSTOLES [None]
